FAERS Safety Report 21346902 (Version 1)
Quarter: 2022Q3

REPORT INFORMATION
  Report Type: Spontaneous
  Country: US (occurrence: None)
  Receive Date: 20220916
  Receipt Date: 20220916
  Transmission Date: 20221027
  Serious: No
  Sender: FDA-Public Use
  Company Number: None

PATIENT
  Age: 20 Year
  Sex: Male

DRUGS (1)
  1. AMBRISENTAN [Suspect]
     Active Substance: AMBRISENTAN
     Indication: Pulmonary hypertension
     Dosage: FREQUENCY : DAILY;?
     Route: 048
     Dates: start: 201905

REACTIONS (6)
  - SARS-CoV-2 test positive [None]
  - Pyrexia [None]
  - Headache [None]
  - Oropharyngeal pain [None]
  - Pain [None]
  - Cough [None]

NARRATIVE: CASE EVENT DATE: 20220914
